FAERS Safety Report 15474958 (Version 1)
Quarter: 2018Q4

REPORT INFORMATION
  Report Type: Spontaneous
  Country: GB (occurrence: GB)
  Receive Date: 20181008
  Receipt Date: 20181008
  Transmission Date: 20190205
  Serious: Yes (Hospitalization, Other)
  Sender: FDA-Public Use
  Company Number: GB-MYLANLABS-01P-163-0186925-00

PATIENT
  Age: 75 Year
  Sex: Female

DRUGS (7)
  1. ERYTHROMYCIN. [Suspect]
     Active Substance: ERYTHROMYCIN
     Indication: URINARY TRACT INFECTION
     Dosage: 1000MILLIGRAMQID
     Route: 048
  2. ERYTHROMYCIN. [Suspect]
     Active Substance: ERYTHROMYCIN
     Indication: PROPHYLAXIS
     Dosage: 2000MILLIGRAMQ6H
     Route: 048
  3. DIGOXIN. [Concomitant]
     Active Substance: DIGOXIN
     Indication: PRODUCT USED FOR UNKNOWN INDICATION
     Dosage: UNK
  4. WARFARIN [Concomitant]
     Active Substance: WARFARIN
     Indication: PRODUCT USED FOR UNKNOWN INDICATION
     Dosage: UNK
  5. ERYTHROMYCIN. [Suspect]
     Active Substance: ERYTHROMYCIN
     Dosage: 1000 MG, QD
     Route: 048
  6. CARBIMAZOLE [Interacting]
     Active Substance: CARBIMAZOLE
     Indication: HYPERTHYROIDISM
     Dosage: UNK
  7. FUROSEMIDE. [Concomitant]
     Active Substance: FUROSEMIDE
     Indication: PRODUCT USED FOR UNKNOWN INDICATION
     Dosage: UNK

REACTIONS (6)
  - Drug interaction [Unknown]
  - Presyncope [Unknown]
  - Electrocardiogram QT prolonged [Recovered/Resolved]
  - Overdose [Unknown]
  - Torsade de pointes [Unknown]
  - Hypothyroidism [Unknown]
